FAERS Safety Report 17030265 (Version 2)
Quarter: 2021Q4

REPORT INFORMATION
  Report Type: Spontaneous
  Country: US (occurrence: US)
  Receive Date: 20191114
  Receipt Date: 20211214
  Transmission Date: 20220303
  Serious: Yes (Death, Life-Threatening, Hospitalization, Other)
  Sender: FDA-Public Use
  Company Number: US-SUN PHARMACEUTICAL INDUSTRIES LTD-2019R1-226952

PATIENT
  Age: 53 Year
  Sex: Male

DRUGS (3)
  1. PREDNISONE [Suspect]
     Active Substance: PREDNISONE
     Indication: Product used for unknown indication
     Dosage: UNK
     Route: 065
  2. TACROLIMUS [Suspect]
     Active Substance: TACROLIMUS
     Indication: Product used for unknown indication
     Dosage: UNK
     Route: 065
  3. BALSALAZIDE [Suspect]
     Active Substance: BALSALAZIDE
     Indication: Product used for unknown indication
     Dosage: UNK
     Route: 065

REACTIONS (6)
  - Disseminated varicella zoster vaccine virus infection [Fatal]
  - Acidosis [Unknown]
  - Renal failure [Unknown]
  - Disseminated intravascular coagulation [Not Recovered/Not Resolved]
  - Respiratory failure [Unknown]
  - Cardiac arrest [Unknown]
